FAERS Safety Report 4818446-6 (Version None)
Quarter: 2005Q4

REPORT INFORMATION
  Report Type: 
  Country: None (occurrence: None)
  Receive Date: 20051031
  Receipt Date: 20051019
  Transmission Date: 20060501
  Serious: Yes (Other)
  Sender: FDA-Public Use
  Company Number: 2005144369

PATIENT
  Sex: Female
  Weight: 56.6996 kg

DRUGS (3)
  1. LIPITOR [Suspect]
     Indication: BLOOD CHOLESTEROL
     Dosage: 10 MG (10 MG, 1 IN 1 D), UNKNOWN
     Route: 065
     Dates: start: 20020101, end: 20051016
  2. IBANDRONATE SODIUM (IBANDRONATE SODIUM) [Suspect]
     Indication: BONE DENSITOMETRY
     Dosage: UNKNOWN
     Route: 065
     Dates: start: 20050101, end: 20050901
  3. ALL OTHER THERAPEUTIC PRODUCTS (ALL OTHER THERAPEUTIC PRODUCTS) [Suspect]
     Indication: BREAST CANCER
     Dosage: UNKNOWN
     Route: 065

REACTIONS (4)
  - BODY HEIGHT DECREASED [None]
  - BREAST CANCER FEMALE [None]
  - MUSCULOSKELETAL DISCOMFORT [None]
  - PAIN IN EXTREMITY [None]
